FAERS Safety Report 19206695 (Version 1)
Quarter: 2021Q2

REPORT INFORMATION
  Report Type: Spontaneous
  Country: CN (occurrence: CN)
  Receive Date: 20210430
  Receipt Date: 20210430
  Transmission Date: 20210717
  Serious: Yes (Other)
  Sender: FDA-Public Use
  Company Number: CN-BAYER-2021-132890

PATIENT
  Age: 50 Year
  Sex: Male

DRUGS (4)
  1. NEXAVAR [Suspect]
     Active Substance: SORAFENIB
     Indication: HEPATIC CANCER
     Dosage: 0.4 G, BID
     Route: 048
     Dates: end: 202008
  2. NEXAVAR [Suspect]
     Active Substance: SORAFENIB
     Indication: HEPATIC CANCER
     Dosage: DOSE REDUCED ABOUT TWO WEEKS
     Route: 048
  3. NEXAVAR [Suspect]
     Active Substance: SORAFENIB
     Indication: HEPATIC CANCER
     Dosage: 0.4 G, BID
     Route: 048
     Dates: start: 202004
  4. STIVARGA [Suspect]
     Active Substance: REGORAFENIB
     Indication: HEPATIC CANCER
     Dosage: 120 MG, QD
     Route: 048
     Dates: start: 202008

REACTIONS (7)
  - Palmar-plantar erythrodysaesthesia syndrome [None]
  - Retroperitoneal lymphadenopathy [None]
  - Hepatocellular carcinoma [None]
  - Ascites [None]
  - Off label use [None]
  - Tachypnoea [None]
  - Metastases to abdominal cavity [None]

NARRATIVE: CASE EVENT DATE: 2020
